FAERS Safety Report 23222770 (Version 2)
Quarter: 2024Q1

REPORT INFORMATION
  Report Type: Report from Study
  Country: US (occurrence: US)
  Receive Date: 20231123
  Receipt Date: 20240213
  Transmission Date: 20240410
  Serious: Yes (Other)
  Sender: FDA-Public Use
  Company Number: US-AstraZeneca-CH-00511234A

PATIENT
  Sex: Female

DRUGS (3)
  1. SOLIRIS [Suspect]
     Active Substance: ECULIZUMAB
     Indication: Product used for unknown indication
     Dosage: UNK
     Route: 065
  2. IMURAN [Concomitant]
     Active Substance: AZATHIOPRINE
     Indication: Product used for unknown indication
     Dosage: 150 MILLIGRAM
     Route: 065
  3. VITAMIN A [Concomitant]
     Active Substance: VITAMIN A
     Indication: Squamous cell carcinoma
     Dosage: UNK
     Route: 065

REACTIONS (11)
  - Squamous cell carcinoma [Unknown]
  - Aspiration [Unknown]
  - Feeling abnormal [Not Recovered/Not Resolved]
  - Eyelid ptosis [Unknown]
  - Therapeutic response shortened [Unknown]
  - Dysphagia [Unknown]
  - Reduced facial expression [Unknown]
  - Herpes zoster [Unknown]
  - Asthenia [Unknown]
  - Hypersomnia [Unknown]
  - Cough [Unknown]

NARRATIVE: CASE EVENT DATE: 20230501
